FAERS Safety Report 23653900 (Version 1)
Quarter: 2024Q1

REPORT INFORMATION
  Report Type: Report from Study
  Country: CA (occurrence: None)
  Receive Date: 20240320
  Receipt Date: 20240320
  Transmission Date: 20240409
  Serious: Yes (Death, Other)
  Sender: FDA-Public Use
  Company Number: CA-PFIZER INC-202400065722

PATIENT
  Age: 87 Year
  Sex: Male
  Weight: 70 kg

DRUGS (4)
  1. METHOTREXATE [Suspect]
     Active Substance: METHOTREXATE
     Indication: Pain in extremity
  2. METHOTREXATE [Suspect]
     Active Substance: METHOTREXATE
     Indication: Ankylosing spondylitis
  3. REMICADE [Suspect]
     Active Substance: INFLIXIMAB
     Indication: Ankylosing spondylitis
  4. REMICADE [Suspect]
     Active Substance: INFLIXIMAB

REACTIONS (7)
  - Death [Fatal]
  - Drug ineffective for unapproved indication [Fatal]
  - Nausea [Fatal]
  - Pain in extremity [Fatal]
  - Taste disorder [Fatal]
  - Weight decreased [Fatal]
  - Product use in unapproved indication [Unknown]
